FAERS Safety Report 9188990 (Version 2)
Quarter: 2013Q2

REPORT INFORMATION
  Report Type: Spontaneous
  Country: US (occurrence: US)
  Receive Date: 20130326
  Receipt Date: 20130607
  Transmission Date: 20140414
  Serious: No
  Sender: FDA-Public Use
  Company Number: US-009507513-1303USA011980

PATIENT
  Age: 51 Year
  Sex: Male
  Weight: 124.26 kg

DRUGS (8)
  1. PEG-INTRON [Suspect]
     Dosage: REDIPEN 150 MCG; DIAL TO 0.5 ML AND INJECT AS DIRECTED BY PHYSICIAN, QW
     Route: 058
  2. REBETOL [Suspect]
     Route: 048
  3. VICTRELIS [Suspect]
     Dosage: 800 MG, TID
     Route: 048
  4. HUMALOG [Concomitant]
     Dosage: 100/ML
     Route: 058
  5. LANTUS [Concomitant]
     Dosage: 100/ML
     Route: 058
  6. LISINOPRIL [Concomitant]
     Route: 048
  7. GLIMEPIRIDE [Concomitant]
     Route: 048
  8. VITAMINS (UNSPECIFIED) [Concomitant]
     Route: 048

REACTIONS (16)
  - Pain [Unknown]
  - Dry skin [Unknown]
  - Rash [Unknown]
  - Cough [Unknown]
  - Depression [Unknown]
  - Oral herpes [Unknown]
  - Dysgeusia [Unknown]
  - Blood glucose increased [Unknown]
  - Depression [Unknown]
  - Fatigue [Unknown]
  - Ageusia [Unknown]
  - Weight increased [Unknown]
  - Cough [Unknown]
  - Pulmonary oedema [Unknown]
  - Stomatitis [Unknown]
  - Headache [Unknown]
